FAERS Safety Report 9822725 (Version 4)
Quarter: 2014Q3

REPORT INFORMATION
  Report Type: Report from Study
  Country: US (occurrence: US)
  Receive Date: 20140116
  Receipt Date: 20140721
  Transmission Date: 20150326
  Serious: Yes (Hospitalization)
  Sender: FDA-Public Use
  Company Number: US-BIOGENIDEC-2014BI001379

PATIENT
  Age: 49 Year
  Sex: Female

DRUGS (2)
  1. AVONEX [Suspect]
     Active Substance: INTERFERON BETA-1A
     Indication: MULTIPLE SCLEROSIS
     Route: 030
     Dates: start: 201404
  2. AVONEX [Suspect]
     Active Substance: INTERFERON BETA-1A
     Indication: MULTIPLE SCLEROSIS
     Route: 030

REACTIONS (13)
  - Hypoaesthesia [Not Recovered/Not Resolved]
  - Urinary tract infection [Unknown]
  - Tremor [Not Recovered/Not Resolved]
  - Hepatic function abnormal [Recovered/Resolved]
  - Multiple sclerosis [Not Recovered/Not Resolved]
  - Influenza like illness [Recovered/Resolved]
  - Cystitis [Recovered/Resolved]
  - Cholecystitis [Recovered/Resolved]
  - Decubitus ulcer [Recovered/Resolved]
  - Memory impairment [Not Recovered/Not Resolved]
  - Impaired healing [Recovered/Resolved]
  - Urosepsis [Recovered/Resolved]
  - Urinary incontinence [Not Recovered/Not Resolved]

NARRATIVE: CASE EVENT DATE: 2013
